FAERS Safety Report 20025528 (Version 2)
Quarter: 2022Q1

REPORT INFORMATION
  Report Type: Report from Study
  Country: TH (occurrence: TH)
  Receive Date: 20211102
  Receipt Date: 20220105
  Transmission Date: 20220423
  Serious: Yes (Death, Hospitalization)
  Sender: FDA-Public Use
  Company Number: TH-NOVARTISPH-NVSC2021TH244633

PATIENT
  Sex: Male

DRUGS (15)
  1. ELTROMBOPAG OLAMINE [Suspect]
     Active Substance: ELTROMBOPAG OLAMINE
     Indication: Aplastic anaemia
     Dosage: 25 MG (3 TABLETS), QD (ONCE DAILY BEFORE BREAKFAST 1 HOUR)
     Route: 048
  2. ELTROMBOPAG OLAMINE [Suspect]
     Active Substance: ELTROMBOPAG OLAMINE
     Dosage: 25 MG (4 TABLETS), QD (ONCE DAILY BEFORE BREAKFAST 1 HOUR)
     Route: 048
  3. CYCLOSPORINE [Suspect]
     Active Substance: CYCLOSPORINE
     Indication: Product used for unknown indication
     Dosage: 100 MG (1 CAPSULE), Q12H (EVERY 12 HOURS)
     Route: 048
  4. LIORESAL [Suspect]
     Active Substance: BACLOFEN
     Indication: Product used for unknown indication
     Dosage: 10 MG (1 TABLET) , BID (TWICE DAILY AFTER BREAKFAST AND DINNER)
     Route: 048
  5. GABAPENTIN [Suspect]
     Active Substance: GABAPENTIN
     Indication: Product used for unknown indication
     Dosage: 300 MG (1 TABLET), BID (TWICE DAILY AT THE MORNING AND BEDTIME)
     Route: 048
  6. PREDNISOLONE [Concomitant]
     Active Substance: PREDNISOLONE
     Indication: Product used for unknown indication
     Dosage: 5 MG (3 TABLETS), QD (ONCE DAILY AFTER BREAKFAST)
     Route: 048
  7. LACTULOSE [Concomitant]
     Active Substance: LACTULOSE
     Indication: Product used for unknown indication
     Dosage: 30 CC, QD (ONCE DAILY AT BEDTIME)
     Route: 048
  8. MYDOCALM [Concomitant]
     Indication: Product used for unknown indication
     Dosage: 50 MG (1 TABLET), TID (THREE TIMES A DAY AFTER BREAKFAST LUNCH AND DINNER)
     Route: 048
  9. TRAMADOL [Concomitant]
     Active Substance: TRAMADOL
     Indication: Product used for unknown indication
     Dosage: 50 MG (1 CAPSULE), TID (THREE TIMES A DAY AFTER BREAKFAST LUNCH AND DINNER)
     Route: 048
  10. COTRIMOXAZOLE [Concomitant]
     Active Substance: SULFAMETHOXAZOLE\TRIMETHOPRIM
     Indication: Product used for unknown indication
     Dosage: 2 DF (80/400 MG), QD (ONCE DAILY AFTER BREAKFAST ON MONDAY AND THURSDAY)
     Route: 048
  11. ACYCLOVIR [Concomitant]
     Active Substance: ACYCLOVIR
     Indication: Product used for unknown indication
     Dosage: 400 MG (1 TABLET), BID (TWICE DAILY AFTER BREAKFAST AND DINNER ON MONDAY WEDNESDAY AND FRIDAY)
     Route: 048
  12. METFORMIN [Concomitant]
     Active Substance: METFORMIN HYDROCHLORIDE
     Indication: Product used for unknown indication
     Dosage: 500 MG (1 TABLET), BID (TWICE DAILY AFTER BREAKFAST AND DINNER)
     Route: 065
  13. GLIPIZIDE [Concomitant]
     Active Substance: GLIPIZIDE
     Indication: Product used for unknown indication
     Dosage: 5 MG (A HALF OF TABLET), QD (ONCE DAILY BEFORE BREAKFAST 15-30 MIN)
     Route: 048
  14. OMEPRAZOLE [Concomitant]
     Active Substance: OMEPRAZOLE
     Indication: Product used for unknown indication
     Dosage: 20 MG (1 CAPSULE), QD (ONCE DAILY BEFORE BREAKFAST)
     Route: 048
  15. FOLIC ACID [Concomitant]
     Active Substance: FOLIC ACID
     Indication: Product used for unknown indication
     Dosage: 5 MG (1 TABLET), QD (ONCE DAILY AFTER BREAKFAST)
     Route: 048

REACTIONS (8)
  - Sepsis [Fatal]
  - Haemoglobin decreased [Recovering/Resolving]
  - Haematocrit decreased [Recovering/Resolving]
  - White blood cell count decreased [Recovering/Resolving]
  - Streptococcal bacteraemia [Recovering/Resolving]
  - Chills [Recovering/Resolving]
  - Pyrexia [Recovering/Resolving]
  - Platelet count decreased [Recovering/Resolving]
